FAERS Safety Report 24881772 (Version 1)
Quarter: 2025Q1

REPORT INFORMATION
  Report Type: Report from Study
  Country: US (occurrence: US)
  Receive Date: 20250124
  Receipt Date: 20250124
  Transmission Date: 20250409
  Serious: No
  Sender: STALLERGENES
  Company Number: US-AIMMUNE THERAPEUTICS, INC.-2024AIMT00927

PATIENT
  Age: 17 Year
  Sex: Female
  Weight: 63.3 kg

DRUGS (10)
  1. PALFORZIA [Suspect]
     Active Substance: PEANUT
     Indication: Food allergy
     Dates: start: 20240116, end: 20240116
  2. PALFORZIA [Suspect]
     Active Substance: PEANUT
     Dosage: 160 MG, 1X/DAY, MIXED IN APPLE SAUCE
     Dates: start: 20240521, end: 20240522
  3. PALFORZIA [Suspect]
     Active Substance: PEANUT
     Dates: start: 20240522, end: 20240522
  4. PALFORZIA [Suspect]
     Active Substance: PEANUT
     Dosage: 120 MG, 1X/DAY
     Dates: start: 20240524, end: 20240603
  5. PALFORZIA [Suspect]
     Active Substance: PEANUT
     Dosage: 140 MG, 1X/DAY
     Dates: start: 20240604, end: 20240617
  6. PALFORZIA [Suspect]
     Active Substance: PEANUT
     Dosage: 160 MG, 1X/DAY
     Dates: start: 20240618, end: 20240707
  7. PALFORZIA [Suspect]
     Active Substance: PEANUT
     Dates: start: 20240707, end: 20240707
  8. ADAPALENE AND BENZOYL PEROXIDE [Concomitant]
     Active Substance: ADAPALENE\BENZOYL PEROXIDE
     Indication: Acne
     Dates: start: 202012
  9. CLINDAMYCIN PHOSPHATE [Concomitant]
     Active Substance: CLINDAMYCIN PHOSPHATE
     Indication: Acne
  10. TRETINOIN TOCOFERIL [Concomitant]
     Active Substance: TRETINOIN TOCOFERIL
     Indication: Acne

REACTIONS (11)
  - Anaphylactic reaction [Recovered/Resolved]
  - Nasal congestion [Recovered/Resolved]
  - Chest discomfort [Recovered/Resolved]
  - Bronchospasm [Recovered/Resolved]
  - Cough [Recovered/Resolved]
  - Respiratory tract congestion [Recovered/Resolved]
  - Anaphylactic reaction [Recovered/Resolved]
  - Cough [Recovered/Resolved]
  - Throat tightness [Recovered/Resolved]
  - Chest discomfort [Recovered/Resolved]
  - Abdominal discomfort [Recovered/Resolved]

NARRATIVE: CASE EVENT DATE: 20240522
